FAERS Safety Report 14088472 (Version 9)
Quarter: 2018Q2

REPORT INFORMATION
  Report Type: Spontaneous
  Country: US (occurrence: US)
  Receive Date: 20171013
  Receipt Date: 20180412
  Transmission Date: 20180711
  Serious: No
  Sender: FDA-Public Use
  Company Number: US-ACTELION-A-NJ2017-160990

PATIENT
  Age: 74 Year
  Sex: Female
  Weight: 83.9 kg

DRUGS (5)
  1. TYVASO [Suspect]
     Active Substance: TREPROSTINIL
     Dosage: 18-54 MCG, QID (3-9 BREATHS)
     Route: 055
  2. SILDENAFIL. [Concomitant]
     Active Substance: SILDENAFIL
  3. OPSUMIT [Suspect]
     Active Substance: MACITENTAN
     Indication: PULMONARY ARTERIAL HYPERTENSION
     Dosage: 10 MG, QD
     Route: 048
  4. WARFARIN [Concomitant]
     Active Substance: WARFARIN
  5. TYVASO [Suspect]
     Active Substance: TREPROSTINIL
     Indication: PULMONARY ARTERIAL HYPERTENSION
     Dosage: 18-72 MCG (3-12 BRETHS)
     Route: 055
     Dates: start: 20170721

REACTIONS (16)
  - Cough [Unknown]
  - Dyspnoea [Unknown]
  - Haemoglobin decreased [Unknown]
  - Extra dose administered [Unknown]
  - Influenza [Unknown]
  - Diarrhoea [Unknown]
  - Dizziness [Recovering/Resolving]
  - Unevaluable event [Unknown]
  - Iron deficiency anaemia [Unknown]
  - Nausea [Unknown]
  - Vertigo [Recovering/Resolving]
  - Weight decreased [Unknown]
  - No adverse event [Unknown]
  - Burn oesophageal [Unknown]
  - Decreased appetite [Unknown]
  - Haematocrit decreased [Unknown]

NARRATIVE: CASE EVENT DATE: 20171006
